FAERS Safety Report 9773153 (Version 1)
Quarter: 2013Q4

REPORT INFORMATION
  Report Type: Spontaneous
  Country: US (occurrence: None)
  Receive Date: 20131217
  Receipt Date: 20131217
  Transmission Date: 20140711
  Serious: Yes (Other)
  Sender: FDA-Public Use
  Company Number: SYM-2013-13792

PATIENT
  Sex: Male

DRUGS (2)
  1. FLUOROURACIL (FLUOROURACIL) (FLUOROURACIL) [Suspect]
     Indication: COLORECTAL CANCER METASTATIC
     Dosage: INTRAVENOUS
     Route: 042
     Dates: start: 201107, end: 201204
  2. CETUXIMAB [Suspect]
     Indication: COLORECTAL CANCER METASTATIC
     Dates: start: 201107, end: 201203

REACTIONS (1)
  - Drug ineffective [None]
